FAERS Safety Report 6705964-9 (Version None)
Quarter: 2010Q2

REPORT INFORMATION
  Report Type: 
  Country: None (occurrence: None)
  Receive Date: 20100430
  Receipt Date: 20100430
  Transmission Date: 20101027
  Serious: No
  Sender: FDA-Public Use
  Company Number: None

PATIENT
  Age: 34 Year
  Sex: Female
  Weight: 61.2356 kg

DRUGS (1)
  1. TRI-LUMA [Suspect]
     Indication: CHLOASMA
     Dosage: PEA SIZED AMOUNT 1-2 TIMES A DAY
     Dates: start: 20090601, end: 20100401

REACTIONS (2)
  - INCORRECT DRUG ADMINISTRATION DURATION [None]
  - MUSCLE TWITCHING [None]
